FAERS Safety Report 8138668-9 (Version None)
Quarter: 2012Q1

REPORT INFORMATION
  Report Type: 
  Country: None (occurrence: None)
  Receive Date: 20120215
  Receipt Date: 20120206
  Transmission Date: 20120608
  Serious: Yes (Other)
  Sender: FDA-Public Use
  Company Number: GB-TEVA-315482ISR

PATIENT
  Age: 53 Year
  Sex: Female
  Weight: 57 kg

DRUGS (2)
  1. LANSOPRAZOLE [Suspect]
     Indication: DYSPEPSIA
     Dosage: 15 MILLIGRAM; UNK
     Route: 048
     Dates: start: 20111007, end: 20111214
  2. LANSOPRAZOLE [Suspect]
     Dosage: 30 MILLIGRAM; UNK
     Route: 048
     Dates: start: 20110915, end: 20111007

REACTIONS (1)
  - RENAL IMPAIRMENT [None]
